FAERS Safety Report 6773034-X (Version None)
Quarter: 2010Q2

REPORT INFORMATION
  Report Type: 
  Country: None (occurrence: None)
  Receive Date: 20100614
  Receipt Date: 20100601
  Transmission Date: 20101027
  Serious: Yes (Hospitalization)
  Sender: FDA-Public Use
  Company Number: 232543J10USA

PATIENT
  Age: 58 Year
  Sex: Female
  Weight: 57 kg

DRUGS (6)
  1. REBIF [Suspect]
     Indication: MULTIPLE SCLEROSIS
     Dosage: 44 MCG, 3 IN 1 WK, SUBCUTANEOUS
     Route: 058
     Dates: start: 20050621
  2. LOTREL (AMLODIPINE BESYLATE W/BENAZEPRIL HYDROCHLOR.) [Concomitant]
  3. FOSAMAX [Concomitant]
  4. ACTONEL [Concomitant]
  5. BACLOFEN [Concomitant]
  6. TIZANIDINE (TIZANDIDINE) [Concomitant]

REACTIONS (13)
  - AORTIC ANEURYSM [None]
  - APHASIA [None]
  - DEHYDRATION [None]
  - GAZE PALSY [None]
  - HYPOTENSION [None]
  - MEMORY IMPAIRMENT [None]
  - MUSCULOSKELETAL STIFFNESS [None]
  - NEURALGIA [None]
  - PNEUMONIA [None]
  - SYNCOPE [None]
  - URINARY TRACT INFECTION [None]
  - UROSEPSIS [None]
  - VOMITING [None]
